FAERS Safety Report 9556932 (Version 1)
Quarter: 2013Q3

REPORT INFORMATION
  Report Type: Spontaneous
  Country: US (occurrence: US)
  Receive Date: 20130926
  Receipt Date: 20130926
  Transmission Date: 20140515
  Serious: Yes (Hospitalization, Other)
  Sender: FDA-Public Use
  Company Number: US-BAYER-2013-115568

PATIENT
  Age: 18 Year
  Sex: Female
  Weight: 51 kg

DRUGS (6)
  1. YASMIN [Suspect]
     Indication: MOOD SWINGS
  2. YASMIN [Suspect]
     Indication: ACNE
  3. YASMIN [Suspect]
     Indication: PREMENSTRUAL SYNDROME
  4. BEYAZ [Suspect]
  5. YAZ [Suspect]
     Indication: MENSTRUAL CYCLE MANAGEMENT
  6. YAZ [Suspect]
     Indication: CONTRACEPTION

REACTIONS (5)
  - Thrombosis [None]
  - Pain in extremity [None]
  - Oedema peripheral [None]
  - Peripheral coldness [None]
  - Deep vein thrombosis [None]
